FAERS Safety Report 5225786-8 (Version None)
Quarter: 2007Q1

REPORT INFORMATION
  Report Type: 
  Country: None (occurrence: None)
  Receive Date: 20070131
  Receipt Date: 20070131
  Transmission Date: 20070707
  Serious: No
  Sender: FDA-Public Use
  Company Number: None

PATIENT
  Age: 63 Year
  Sex: Female
  Weight: 56.6996 kg

DRUGS (2)
  1. LEVAQUIN [Suspect]
     Indication: BRONCHITIS
     Dosage: 7 750MG TABLETS 1 PER DAY PO
     Route: 048
     Dates: start: 20070118, end: 20070123
  2. LEVAQUIN [Suspect]
     Indication: SINUSITIS
     Dosage: 7 750MG TABLETS 1 PER DAY PO
     Route: 048
     Dates: start: 20070118, end: 20070123

REACTIONS (6)
  - ARTHRALGIA [None]
  - JOINT RANGE OF MOTION DECREASED [None]
  - MUSCULOSKELETAL STIFFNESS [None]
  - MYALGIA [None]
  - SWELLING [None]
  - TENDON DISORDER [None]
